FAERS Safety Report 6146119-9 (Version None)
Quarter: 2009Q2

REPORT INFORMATION
  Report Type: 
  Country: None (occurrence: None)
  Receive Date: 20090407
  Receipt Date: 20090331
  Transmission Date: 20091009
  Serious: Yes (Hospitalization)
  Sender: FDA-Public Use
  Company Number: US-BAYER-200841420NA

PATIENT
  Age: 25 Year
  Sex: Female

DRUGS (1)
  1. AVELOX [Suspect]
     Indication: EAR INFECTION
     Dates: start: 20080101

REACTIONS (2)
  - HYPOTENSION [None]
  - TACHYCARDIA [None]
